FAERS Safety Report 14839606 (Version 1)
Quarter: 2018Q2

REPORT INFORMATION
  Report Type: Report from Study
  Country: LB (occurrence: LB)
  Receive Date: 20180502
  Receipt Date: 20180502
  Transmission Date: 20180711
  Serious: Yes (Hospitalization)
  Sender: FDA-Public Use
  Company Number: PHHY2018LB074092

PATIENT
  Age: 60 Year
  Sex: Female

DRUGS (1)
  1. TYKERB [Suspect]
     Active Substance: LAPATINIB DITOSYLATE
     Indication: BREAST CANCER METASTATIC
     Dosage: 250 MG, UNK (5 TIMES DAILY)
     Route: 048
     Dates: start: 201801, end: 201803

REACTIONS (1)
  - Paralysis [Recovering/Resolving]

NARRATIVE: CASE EVENT DATE: 201803
